FAERS Safety Report 17607669 (Version 3)
Quarter: 2020Q2

REPORT INFORMATION
  Report Type: Other
  Country: GR (occurrence: GR)
  Receive Date: 20200401
  Receipt Date: 20200604
  Transmission Date: 20200713
  Serious: Yes (Life-Threatening)
  Sender: FDA-Public Use
  Company Number: GR-CELLTRION INC.-2020GR021122

PATIENT

DRUGS (1)
  1. INFLIXIMAB (UNKNOWN) [Suspect]
     Active Substance: INFLIXIMAB
     Indication: ANKYLOSING SPONDYLITIS
     Dosage: 3 DF (2 MONTHS)
     Route: 042
     Dates: start: 2001, end: 2019

REACTIONS (2)
  - Neuroendocrine carcinoma [Unknown]
  - Metastases to the mediastinum [Unknown]

NARRATIVE: CASE EVENT DATE: 202001
